FAERS Safety Report 17016889 (Version 2)
Quarter: 2020Q1

REPORT INFORMATION
  Report Type: Report from Study
  Country: NL (occurrence: NL)
  Receive Date: 20191111
  Receipt Date: 20200110
  Transmission Date: 20200409
  Serious: Yes (Other)
  Sender: FDA-Public Use
  Company Number: PHHY2014NL071094

PATIENT
  Age: 57 Year
  Sex: Female

DRUGS (1)
  1. GILENYA [Suspect]
     Active Substance: FINGOLIMOD HYDROCHLORIDE
     Indication: MULTIPLE SCLEROSIS
     Dosage: UNK, QD
     Route: 048
     Dates: start: 20131029, end: 20131203

REACTIONS (8)
  - Depression [Unknown]
  - Macular hole [Recovered/Resolved]
  - Blood sodium increased [Unknown]
  - Urinary tract infection [Unknown]
  - Malaise [Unknown]
  - Mood swings [Recovered/Resolved]
  - Headache [Recovered/Resolved]
  - Osteoarthritis [Recovered/Resolved]

NARRATIVE: CASE EVENT DATE: 20131120
